FAERS Safety Report 6589207-5 (Version None)
Quarter: 2010Q1

REPORT INFORMATION
  Report Type: 
  Country: None (occurrence: None)
  Receive Date: 20100218
  Receipt Date: 20100208
  Transmission Date: 20100710
  Serious: Yes (Other)
  Sender: FDA-Public Use
  Company Number: US-WYE-H13423810

PATIENT
  Sex: Female

DRUGS (6)
  1. EFFEXOR [Suspect]
     Indication: MAJOR DEPRESSION
     Dosage: MAINTAINED ON 400 MG DAILY, TRIED GENERIC VENLAFAXINE, DECREASED FROM 350 TO 200, THEN REDUCED BY 75
     Route: 048
  2. KLONOPIN [Concomitant]
     Dosage: UNKNOWN
  3. SEROQUEL [Concomitant]
     Dosage: UNKNOWN
  4. VIVACTIL [Concomitant]
     Dosage: UNKNOWN
  5. SYNTHROID [Concomitant]
     Dosage: UNKNOWN
  6. PLAQUENIL [Concomitant]
     Dosage: UNKNOWN

REACTIONS (6)
  - DRUG WITHDRAWAL SYNDROME [None]
  - FEELING OF DESPAIR [None]
  - IMPULSIVE BEHAVIOUR [None]
  - INTENTIONAL SELF-INJURY [None]
  - SUICIDAL IDEATION [None]
  - SUICIDE ATTEMPT [None]
